FAERS Safety Report 25572250 (Version 1)
Quarter: 2025Q3

REPORT INFORMATION
  Report Type: Spontaneous
  Country: GB (occurrence: GB)
  Receive Date: 20250717
  Receipt Date: 20250717
  Transmission Date: 20251020
  Serious: Yes (Disabling, Other)
  Sender: HIKMA
  Company Number: None

PATIENT
  Age: 45 Year
  Sex: Male
  Weight: 57 kg

DRUGS (2)
  1. CIPROFLOXACIN [Suspect]
     Active Substance: CIPROFLOXACIN
     Indication: Prophylaxis
     Dosage: 500 MILLIGRAM, BID
     Route: 065
     Dates: end: 20250606
  2. PREDNISONE [Concomitant]
     Active Substance: PREDNISONE
     Indication: Pain
     Route: 065
     Dates: start: 20250529, end: 20250604

REACTIONS (2)
  - Fatigue [Recovering/Resolving]
  - Tendon disorder [Unknown]

NARRATIVE: CASE EVENT DATE: 20250612
